FAERS Safety Report 8561815-1 (Version None)
Quarter: 2012Q3

REPORT INFORMATION
  Report Type: 
  Country: None (occurrence: None)
  Receive Date: 20120802
  Receipt Date: 20120112
  Transmission Date: 20120928
  Serious: Yes (Other)
  Sender: FDA-Public Use
  Company Number: US-ROCHE-1095299

PATIENT
  Sex: Male

DRUGS (8)
  1. ACCOLATE [Concomitant]
  2. FLUTICASONE PROPIONATE [Concomitant]
  3. SINGULAIR [Suspect]
     Indication: PRODUCT USED FOR UNKNOWN INDICATION
  4. ALBUTEROL [Concomitant]
     Dosage: 4-5 TIMES A DAY
  5. XOLAIR [Suspect]
     Indication: ASTHMA
  6. ALLEGRA-D 12 HOUR [Concomitant]
  7. PREDNISONE [Concomitant]
     Dosage: BURST (3 TIMES THIS YEAR)
  8. FLOVENT [Concomitant]

REACTIONS (3)
  - ASTHMA [None]
  - WHEEZING [None]
  - DYSPNOEA [None]
